FAERS Safety Report 16651678 (Version 1)
Quarter: 2019Q3

REPORT INFORMATION
  Report Type: Spontaneous
  Country: US (occurrence: US)
  Receive Date: 20190731
  Receipt Date: 20190731
  Transmission Date: 20191004
  Serious: Yes (Death)
  Sender: FDA-Public Use
  Company Number: US-BAYER-2019-139675

PATIENT
  Age: 57 Year
  Sex: Male

DRUGS (6)
  1. QUETIAPINE. [Concomitant]
     Active Substance: QUETIAPINE
  2. LOSARTAN. [Concomitant]
     Active Substance: LOSARTAN
  3. VALPROATE SODIUM. [Concomitant]
     Active Substance: VALPROATE SODIUM
  4. DONEPEZIL. [Concomitant]
     Active Substance: DONEPEZIL
  5. BAYER LOW DOSE [Suspect]
     Active Substance: ASPIRIN
     Indication: CEREBROVASCULAR ACCIDENT PROPHYLAXIS
     Dosage: UNK
     Dates: start: 201901
  6. CITALOPRAM [Concomitant]
     Active Substance: CITALOPRAM HYDROBROMIDE

REACTIONS (3)
  - Product use in unapproved indication [None]
  - Off label use [None]
  - Cerebral haemorrhage [Fatal]

NARRATIVE: CASE EVENT DATE: 201901
